FAERS Safety Report 16764454 (Version 1)
Quarter: 2019Q3

REPORT INFORMATION
  Report Type: Spontaneous
  Country: CH (occurrence: CH)
  Receive Date: 20190902
  Receipt Date: 20190902
  Transmission Date: 20191005
  Serious: Yes (Other)
  Sender: FDA-Public Use
  Company Number: CH-ASTRAZENECA-2019SF20191

PATIENT
  Sex: Male

DRUGS (12)
  1. ORFIRIL [Suspect]
     Active Substance: VALPROATE SODIUM
     Route: 048
  2. SEROQUEL [Suspect]
     Active Substance: QUETIAPINE FUMARATE
     Route: 048
  3. VITAMIN D3 STREULI [Concomitant]
     Active Substance: CHOLECALCIFEROL
     Route: 048
  4. TORASEMID SANDOZ ECO [Concomitant]
     Active Substance: TORSEMIDE
     Dosage: 10 MG 1-0-1/2-0
     Route: 048
  5. DAFALGAN [Concomitant]
     Active Substance: ACETAMINOPHEN
     Dosage: 500.0MG AS REQUIRED
     Route: 048
  6. TORASEMID SANDOZ ECO [Concomitant]
     Active Substance: TORSEMIDE
     Dosage: 10 MG 1-0-1/2-0
     Route: 048
  7. MAGNESIOCARD [Concomitant]
     Active Substance: MAGNESIUM ASPARTATE HYDROCHLORIDE
     Dosage: 5.0MMOL AS REQUIRED
     Route: 048
  8. ORFIRIL [Suspect]
     Active Substance: VALPROATE SODIUM
     Route: 048
  9. ENALAPRIL SPIRIG HC [Concomitant]
     Route: 048
  10. PANTOPRAZOL SANDOZ [Concomitant]
     Active Substance: PANTOPRAZOLE SODIUM
     Route: 048
  11. ASPIRIN CARDIO [Concomitant]
     Active Substance: ASPIRIN
     Route: 048
  12. METO ZEROK [Concomitant]
     Active Substance: METOPROLOL SUCCINATE
     Route: 048

REACTIONS (2)
  - Dementia [Not Recovered/Not Resolved]
  - Parkinsonism [Not Recovered/Not Resolved]

NARRATIVE: CASE EVENT DATE: 2019
